FAERS Safety Report 4569705-6 (Version None)
Quarter: 2005Q1

REPORT INFORMATION
  Report Type: 
  Country: None (occurrence: None)
  Receive Date: 20050201
  Receipt Date: 20050118
  Transmission Date: 20050727
  Serious: Yes (Death)
  Sender: FDA-Public Use
  Company Number: 2005016007

PATIENT
  Age: 54 Year
  Sex: Male
  Weight: 87 kg

DRUGS (12)
  1. CELEBREX [Suspect]
     Indication: RHEUMATOID ARTHRITIS
     Dosage: 200 MG, ORAL
     Route: 048
     Dates: start: 20031224, end: 20041010
  2. ALLOPURINOL [Concomitant]
  3. TRAMADOL HCL [Concomitant]
  4. PREDNISOLONE [Concomitant]
  5. METHOTREXATE [Concomitant]
  6. FOLIC ACID [Concomitant]
  7. MINOCYCLINE (MINOCYLCINE) [Concomitant]
  8. PARACETAMOL (PARACETAMOL) [Concomitant]
  9. ALENDRONATE SODIUM [Concomitant]
  10. SIMVASTATIN [Concomitant]
  11. AMITRIPTYLINE (AMITRIPTYLINE) [Concomitant]
  12. METFORMIN HCL [Concomitant]

REACTIONS (1)
  - ACUTE MYOCARDIAL INFARCTION [None]
